FAERS Safety Report 7610804-X (Version None)
Quarter: 2011Q3

REPORT INFORMATION
  Report Type: 
  Country: None (occurrence: None)
  Receive Date: 20110715
  Receipt Date: 20110713
  Transmission Date: 20111222
  Serious: Yes (Death, Hospitalization)
  Sender: FDA-Public Use
  Company Number: PHFR2011GB03555

PATIENT
  Sex: Male

DRUGS (9)
  1. DONEPEZIL HCL [Concomitant]
     Indication: DEMENTIA
     Dosage: 10 MG/DAY
     Route: 048
     Dates: start: 20070101
  2. MACROGOL 3350 [Concomitant]
     Indication: CONSTIPATION
     Dosage: 1 DF, UNK
     Route: 048
  3. ASPIRIN [Concomitant]
     Indication: PROPHYLAXIS
     Dosage: 75 MG/DAY
     Route: 048
  4. CLOZAPINE [Suspect]
     Indication: PARKINSON'S DISEASE
     Dosage: 6 MG, BID
     Route: 048
     Dates: start: 20091006
  5. HYOSCINE [Concomitant]
     Indication: SALIVARY HYPERSECRETION
     Dosage: 600 UG/DAY
     Route: 048
  6. CLOZAPINE [Suspect]
     Indication: PSYCHOTIC DISORDER
  7. LATANOPROST [Concomitant]
     Indication: GLAUCOMA
     Dosage: 1 DF, UNK
  8. CO-CARELDOPA [Concomitant]
     Indication: PARKINSON'S DISEASE
     Dosage: 5 TAB(100/25) /DAY
     Route: 048
  9. BRIMONIDINE [Concomitant]
     Dosage: 1 DF, BID
     Route: 048

REACTIONS (4)
  - PNEUMONIA [None]
  - EMOTIONAL DISTRESS [None]
  - ASTHENIA [None]
  - HALLUCINATION [None]
